FAERS Safety Report 5527983-0 (Version None)
Quarter: 2007Q4

REPORT INFORMATION
  Report Type: 
  Country: None (occurrence: None)
  Receive Date: 20071128
  Receipt Date: 20071121
  Transmission Date: 20080405
  Serious: Yes (Life-Threatening, Hospitalization)
  Sender: FDA-Public Use
  Company Number: JP-MERCK-0710USA03504

PATIENT
  Age: 77 Year
  Sex: Female
  Weight: 50 kg

DRUGS (6)
  1. FOSAMAX [Suspect]
     Indication: OSTEOPOROSIS
     Route: 048
     Dates: start: 20070922, end: 20070922
  2. ENALAPRIL MALEATE [Concomitant]
     Route: 048
  3. CHOLECALCIFEROL AND VITAMIN A [Concomitant]
     Indication: OSTEOPOROSIS
     Route: 048
  4. THYRADIN-S [Concomitant]
     Indication: HYPOTHYROIDISM
     Route: 048
  5. ASPARA [Concomitant]
     Indication: OSTEOPOROSIS
     Route: 048
  6. LUVOX [Concomitant]
     Indication: DEPRESSION
     Route: 048
     Dates: end: 20070926

REACTIONS (6)
  - CARDIAC FAILURE ACUTE [None]
  - ELECTROCARDIOGRAM QT PROLONGED [None]
  - HAEMOPTYSIS [None]
  - HYPOCALCAEMIA [None]
  - HYPOGLYCAEMIA [None]
  - HYPOTHYROIDISM [None]
